FAERS Safety Report 15687494 (Version 1)
Quarter: 2018Q4

REPORT INFORMATION
  Report Type: Spontaneous
  Country: US (occurrence: US)
  Receive Date: 20181205
  Receipt Date: 20181205
  Transmission Date: 20190205
  Serious: No
  Sender: FDA-Public Use
  Company Number: US-ROCHE-2034596

PATIENT
  Sex: Male
  Weight: 81.72 kg

DRUGS (8)
  1. VALIUM [Suspect]
     Active Substance: DIAZEPAM
     Indication: ANXIETY
     Dosage: AS REQUIRED
     Route: 065
     Dates: start: 201611, end: 20171105
  2. PAROXETINE. [Interacting]
     Active Substance: PAROXETINE
     Indication: ANXIETY
     Route: 048
     Dates: start: 201611, end: 20171022
  3. VITAMIN D3 [Concomitant]
     Active Substance: CHOLECALCIFEROL
     Route: 065
  4. MELATONIN [Concomitant]
     Active Substance: MELATONIN
  5. PRILOSEC [Concomitant]
     Active Substance: OMEPRAZOLE MAGNESIUM
     Route: 065
  6. LISINOPRIL. [Concomitant]
     Active Substance: LISINOPRIL
     Indication: HYPERTENSION
     Route: 065
     Dates: start: 20170616
  7. ZANTAC [Concomitant]
     Active Substance: RANITIDINE HYDROCHLORIDE
     Route: 065
  8. SYNTHROID [Concomitant]
     Active Substance: LEVOTHYROXINE SODIUM
     Dosage: ONGOING; UNKNOWN
     Route: 065
     Dates: start: 2014

REACTIONS (27)
  - Hypertension [Unknown]
  - Confusional state [Not Recovered/Not Resolved]
  - Somnolence [Unknown]
  - Gait disturbance [Unknown]
  - Muscle twitching [Unknown]
  - Blepharospasm [Unknown]
  - Fatigue [Recovering/Resolving]
  - Tongue spasm [Recovered/Resolved]
  - Dry throat [Not Recovered/Not Resolved]
  - Drug interaction [Unknown]
  - Disturbance in attention [Unknown]
  - Depressed mood [Unknown]
  - Chest pain [Unknown]
  - Muscle spasms [Unknown]
  - Tremor [Not Recovered/Not Resolved]
  - Feeling abnormal [Unknown]
  - Dizziness [Unknown]
  - Chest discomfort [Unknown]
  - Headache [Not Recovered/Not Resolved]
  - Trance [Unknown]
  - Memory impairment [Unknown]
  - Paraesthesia [Unknown]
  - Yawning [Unknown]
  - Anxiety [Not Recovered/Not Resolved]
  - Amnesia [Unknown]
  - Hyperaesthesia [Not Recovered/Not Resolved]
  - Vomiting [Not Recovered/Not Resolved]

NARRATIVE: CASE EVENT DATE: 2017
